FAERS Safety Report 6392451-3 (Version None)
Quarter: 2009Q4

REPORT INFORMATION
  Report Type: 
  Country: None (occurrence: None)
  Receive Date: 20091007
  Receipt Date: 20090930
  Transmission Date: 20100525
  Serious: Yes (Hospitalization, Other)
  Sender: FDA-Public Use
  Company Number: US-PFIZER INC-2009258512

PATIENT
  Sex: Male

DRUGS (3)
  1. DEPO-MEDROL [Suspect]
     Indication: OSTEOARTHRITIS
     Dates: start: 20090813
  2. DEPO-MEDROL [Suspect]
     Indication: PAIN
  3. ROPIVACAINE [Suspect]
     Dosage: UNK
     Dates: start: 20090813

REACTIONS (4)
  - JOINT SWELLING [None]
  - PAIN [None]
  - PYREXIA [None]
  - STAPHYLOCOCCAL BACTERAEMIA [None]
